FAERS Safety Report 7126338-5 (Version None)
Quarter: 2010Q4

REPORT INFORMATION
  Report Type: 
  Country: None (occurrence: None)
  Receive Date: 20101129
  Receipt Date: 20101122
  Transmission Date: 20110411
  Serious: Yes (Other)
  Sender: FDA-Public Use
  Company Number: US-US-EMD SERONO, INC.-7010190

PATIENT
  Sex: Female
  Weight: 35 kg

DRUGS (1)
  1. SAIZEN [Suspect]
     Indication: CHROMOSOMAL DELETION
     Route: 058
     Dates: start: 20090914

REACTIONS (3)
  - HOMICIDAL IDEATION [None]
  - POLLAKIURIA [None]
  - THIRST [None]
